FAERS Safety Report 8064159-X (Version None)
Quarter: 2012Q1

REPORT INFORMATION
  Report Type: 
  Country: None (occurrence: None)
  Receive Date: 20120123
  Receipt Date: 20120116
  Transmission Date: 20120608
  Serious: Yes (Hospitalization)
  Sender: FDA-Public Use
  Company Number: JP-GLAXOSMITHKLINE-B0776519A

PATIENT
  Age: 3 Decade

DRUGS (2)
  1. ZYPREXA [Concomitant]
     Indication: BIPOLAR DISORDER
     Route: 048
  2. LAMICTAL [Suspect]
     Indication: BIPOLAR DISORDER
     Dosage: 50MG PER DAY
     Route: 048

REACTIONS (5)
  - ABDOMINAL PAIN UPPER [None]
  - BLOOD ALKALINE PHOSPHATASE INCREASED [None]
  - VOMITING [None]
  - HEADACHE [None]
  - CHOLECYSTITIS [None]
